FAERS Safety Report 8341013-7 (Version None)
Quarter: 2012Q1

REPORT INFORMATION
  Report Type: 
  Country: None (occurrence: None)
  Receive Date: 20120330
  Receipt Date: 20110211
  Transmission Date: 20120608
  Serious: Yes (Other)
  Sender: FDA-Public Use
  Company Number: PHHY201IUS12095

PATIENT
  Age: 79 Year
  Sex: Female

DRUGS (3)
  1. ARICEPT [Suspect]
  2. EXELON [Suspect]
  3. EXELON [Suspect]
     Dosage: TRANSDERMA
     Route: 062

REACTIONS (3)
  - NAUSEA [None]
  - WEIGHT DECREASED [None]
  - DEMENTIA [None]
